FAERS Safety Report 7946848-8 (Version None)
Quarter: 2011Q4

REPORT INFORMATION
  Report Type: 
  Country: None (occurrence: None)
  Receive Date: 20111129
  Receipt Date: 20111122
  Transmission Date: 20120403
  Serious: Yes (Other)
  Sender: FDA-Public Use
  Company Number: PHHY2011AU098906

PATIENT
  Sex: Male

DRUGS (2)
  1. GILENYA [Suspect]
     Indication: MULTIPLE SCLEROSIS
     Dosage: 0.5 MG, PER DAY
     Route: 048
  2. VENTOLIN [Concomitant]
     Indication: ASTHMA
     Dosage: UNK UKN, PRN

REACTIONS (5)
  - HALLUCINATION [None]
  - TINEA INFECTION [None]
  - SINUSITIS [None]
  - NIGHTMARE [None]
  - IMMUNE SYSTEM DISORDER [None]
